FAERS Safety Report 9098734 (Version 2)
Quarter: 2013Q1

REPORT INFORMATION
  Report Type: Spontaneous
  Country: US (occurrence: US)
  Receive Date: 20130214
  Receipt Date: 20130306
  Transmission Date: 20140127
  Serious: No
  Sender: FDA-Public Use
  Company Number: US-ROXANE LABORATORIES, INC.-2013-RO-00246RO

PATIENT
  Age: 46 Year
  Sex: Female
  Weight: 83 kg

DRUGS (3)
  1. PREDNISONE [Suspect]
     Indication: IDIOPATHIC PULMONARY FIBROSIS
     Dosage: 60 MG
     Dates: start: 20030130, end: 20030730
  2. PREDNISONE [Suspect]
     Dosage: 20 MG
     Dates: start: 20030730, end: 20040730
  3. OXYGEN THERAPY [Concomitant]
     Indication: IDIOPATHIC PULMONARY FIBROSIS
     Dates: start: 20021115

REACTIONS (3)
  - Drug ineffective [Unknown]
  - Abnormal weight gain [Unknown]
  - Product quality issue [Unknown]
